FAERS Safety Report 4819964-7 (Version None)
Quarter: 2005Q4

REPORT INFORMATION
  Report Type: 
  Country: None (occurrence: None)
  Receive Date: 20051103
  Receipt Date: 20050708
  Transmission Date: 20060501
  Serious: Yes (Hospitalization, Other)
  Sender: FDA-Public Use
  Company Number: US-MERCK-0507USA02004

PATIENT
  Age: 67 Year
  Sex: Male
  Weight: 77 kg

DRUGS (5)
  1. VIOXX [Suspect]
     Indication: CARDIAC DISORDER
     Route: 048
     Dates: start: 19990816, end: 20040628
  2. VIOXX [Suspect]
     Indication: ARTHRALGIA
     Route: 048
     Dates: start: 19990816, end: 20040628
  3. ASPIRIN [Concomitant]
     Indication: PROPHYLAXIS
     Route: 065
     Dates: start: 19760101
  4. IBUPROFEN [Concomitant]
     Route: 065
     Dates: start: 19860101
  5. [THERAPY UNSPECIFIED] [Concomitant]
     Route: 065

REACTIONS (22)
  - ANGINA PECTORIS [None]
  - BACK PAIN [None]
  - BLOOD CHOLESTEROL INCREASED [None]
  - BRAIN OEDEMA [None]
  - CARDIAC DISORDER [None]
  - CARDIOVASCULAR DISORDER [None]
  - CAROTID ARTERY OCCLUSION [None]
  - CATARACT [None]
  - CEREBROVASCULAR ACCIDENT [None]
  - CHEST PAIN [None]
  - DEPRESSION [None]
  - DIFFICULTY IN WALKING [None]
  - DIPLOPIA [None]
  - FEELING ABNORMAL [None]
  - GASTRIC DISORDER [None]
  - HYPERTENSION [None]
  - MEMORY IMPAIRMENT [None]
  - MYOCARDIAL INFARCTION [None]
  - NASOPHARYNGITIS [None]
  - NERVOUS SYSTEM DISORDER [None]
  - PAIN [None]
  - TRANSIENT ISCHAEMIC ATTACK [None]
